FAERS Safety Report 6294325-5 (Version None)
Quarter: 2009Q3

REPORT INFORMATION
  Report Type: 
  Country: None (occurrence: None)
  Receive Date: 20090803
  Receipt Date: 20090721
  Transmission Date: 20100115
  Serious: Yes (Other)
  Sender: FDA-Public Use
  Company Number: US-PFIZER INC-2009214729

PATIENT
  Sex: Male
  Weight: 77 kg

DRUGS (6)
  1. CHANTIX [Suspect]
     Indication: SMOKING CESSATION THERAPY
     Dosage: 1 MG, 2X/DAY
     Route: 048
     Dates: start: 20090410
  2. DILANTIN [Concomitant]
     Dosage: UNK
  3. PRILOSEC [Concomitant]
     Dosage: UNK
  4. PHENOBARBITAL [Concomitant]
     Dosage: UNK
  5. TEGRETOL [Concomitant]
     Dosage: UNK
  6. SEROQUEL [Concomitant]
     Dosage: UNK

REACTIONS (7)
  - DYSGEUSIA [None]
  - IRRITABILITY [None]
  - PAROSMIA [None]
  - SUICIDAL IDEATION [None]
  - THINKING ABNORMAL [None]
  - VIOLENCE-RELATED SYMPTOM [None]
  - WEIGHT DECREASED [None]
